FAERS Safety Report 4267206-6 (Version None)
Quarter: 2004Q1

REPORT INFORMATION
  Report Type: 
  Country: None (occurrence: None)
  Receive Date: 20040108
  Receipt Date: 20040108
  Transmission Date: 20041129
  Serious: Yes (Life-Threatening, Other)
  Sender: FDA-Public Use
  Company Number: None

PATIENT
  Age: 77 Year
  Sex: Female
  Weight: 58.9676 kg

DRUGS (1)
  1. ADVAIR DISKUS 250/50 [Suspect]
     Dosage: ONE PUFF AM AND PM
     Route: 055
     Dates: start: 20031023, end: 20031106

REACTIONS (11)
  - BACK PAIN [None]
  - CHEST PAIN [None]
  - DIZZINESS [None]
  - DYSPEPSIA [None]
  - HEADACHE [None]
  - IMPAIRED DRIVING ABILITY [None]
  - MUSCLE SPASMS [None]
  - NERVOUSNESS [None]
  - PAIN [None]
  - TREMOR [None]
  - VERTIGO [None]
